FAERS Safety Report 5067267-0 (Version None)
Quarter: 2006Q3

REPORT INFORMATION
  Report Type: 
  Country: None (occurrence: None)
  Receive Date: 20060727
  Receipt Date: 20060717
  Transmission Date: 20061208
  Serious: Yes (Other)
  Sender: FDA-Public Use
  Company Number: B0432142A

PATIENT
  Age: 25 Month
  Sex: Male

DRUGS (7)
  1. MYLERAN [Suspect]
     Indication: STEM CELL TRANSPLANT
  2. CYCLOPHOSPHAMIDE [Suspect]
     Indication: STEM CELL TRANSPLANT
  3. ANTITHYMOCYTE IG [Concomitant]
  4. CYCLOSPORINE [Concomitant]
  5. METHOTREXATE [Concomitant]
  6. ZENAPAX [Concomitant]
  7. MYCOPHENOLATE MEFETIL [Concomitant]

REACTIONS (2)
  - GASTROINTESTINAL TOXICITY [None]
  - HEPATOTOXICITY [None]
